FAERS Safety Report 4940921-4 (Version None)
Quarter: 2006Q1

REPORT INFORMATION
  Report Type: 
  Country: None (occurrence: None)
  Receive Date: 20060313
  Receipt Date: 20060227
  Transmission Date: 20060701
  Serious: Yes (Other)
  Sender: FDA-Public Use
  Company Number: PHBS2006US03505

PATIENT
  Age: 63 Year
  Sex: Male

DRUGS (4)
  1. FLUTAMIDE [Concomitant]
  2. RADIATION [Concomitant]
  3. DOCETAXEL [Concomitant]
  4. ZOLEDRONIC ACID [Suspect]
     Indication: PROSTATE CANCER METASTATIC
     Route: 042

REACTIONS (3)
  - BONE DEBRIDEMENT [None]
  - JAW DISORDER [None]
  - OSTEONECROSIS [None]
